FAERS Safety Report 12743648 (Version 1)
Quarter: 2016Q3

REPORT INFORMATION
  Report Type: Spontaneous
  Country: US (occurrence: US)
  Receive Date: 20160914
  Receipt Date: 20160914
  Transmission Date: 20161109
  Serious: No
  Sender: FDA-Public Use
  Company Number: US-SHIRE-US201612481

PATIENT
  Age: 16 Year
  Sex: Female
  Weight: 60.77 kg

DRUGS (2)
  1. BACTRIM [Suspect]
     Active Substance: SULFAMETHOXAZOLE\TRIMETHOPRIM
     Indication: SKIN INFECTION
     Dosage: UNK, UNKNOWN
     Route: 048
     Dates: start: 20160831, end: 20160909
  2. VYVANSE [Suspect]
     Active Substance: LISDEXAMFETAMINE DIMESYLATE
     Indication: ATTENTION DEFICIT/HYPERACTIVITY DISORDER
     Dosage: 30 MG, 1X/DAY:QD
     Route: 048
     Dates: start: 20160908

REACTIONS (2)
  - Drug interaction [Unknown]
  - Rash [Unknown]

NARRATIVE: CASE EVENT DATE: 20160909
